FAERS Safety Report 18271123 (Version 1)
Quarter: 2020Q3

REPORT INFORMATION
  Report Type: Spontaneous
  Country: GB (occurrence: GB)
  Receive Date: 20200916
  Receipt Date: 20200916
  Transmission Date: 20201103
  Serious: Yes (Other)
  Sender: FDA-Public Use
  Company Number: GB-AMGEN-GBRSP2020146135

PATIENT
  Age: 56 Year
  Sex: Female

DRUGS (1)
  1. AMGEVITA [Suspect]
     Active Substance: ADALIMUMAB
     Indication: UVEITIS
     Dosage: 40 MILLIGRAM, Q2WK
     Route: 058
     Dates: start: 20200602

REACTIONS (1)
  - Psoriatic arthropathy [Not Recovered/Not Resolved]
